FAERS Safety Report 9535364 (Version 2)
Quarter: 2013Q3

REPORT INFORMATION
  Report Type: Spontaneous
  Country: US (occurrence: US)
  Receive Date: 20130918
  Receipt Date: 20130918
  Transmission Date: 20140515
  Serious: Yes (Other)
  Sender: FDA-Public Use
  Company Number: US-NAPPMUNDI-USA-2012-0091945

PATIENT
  Sex: Male
  Weight: 61.22 kg

DRUGS (1)
  1. DILAUDID INJECTION [Suspect]
     Indication: PAIN
     Dosage: UNK UNK, SINGLE
     Route: 042
     Dates: start: 2008, end: 2008

REACTIONS (1)
  - Anaphylactic reaction [Recovered/Resolved]
